FAERS Safety Report 11437522 (Version 1)
Quarter: 2015Q3

REPORT INFORMATION
  Report Type: Spontaneous
  Country: US (occurrence: US)
  Receive Date: 20150821
  Receipt Date: 20150821
  Transmission Date: 20151125
  Serious: No
  Sender: FDA-Public Use
  Company Number: US-ELI_LILLY_AND_COMPANY-US200705003128

PATIENT
  Age: 47 Year
  Sex: Male

DRUGS (3)
  1. CYMBALTA [Suspect]
     Active Substance: DULOXETINE HYDROCHLORIDE
     Dosage: 60 MG, 2/D
     Route: 048
  2. CYMBALTA [Suspect]
     Active Substance: DULOXETINE HYDROCHLORIDE
     Indication: POST-TRAUMATIC STRESS DISORDER
     Dosage: 60 MG, DAILY (1/D)
     Route: 048
     Dates: start: 200511
  3. XANAX [Concomitant]
     Active Substance: ALPRAZOLAM

REACTIONS (4)
  - Vomiting [Unknown]
  - Drug effect decreased [Recovered/Resolved]
  - Muscle spasms [Unknown]
  - Memory impairment [Unknown]

NARRATIVE: CASE EVENT DATE: 200611
